FAERS Safety Report 11499947 (Version 4)
Quarter: 2016Q4

REPORT INFORMATION
  Report Type: Spontaneous
  Country: US (occurrence: US)
  Receive Date: 20150914
  Receipt Date: 20161208
  Transmission Date: 20170206
  Serious: Yes (Life-Threatening, Hospitalization, Other)
  Sender: FDA-Public Use
  Company Number: US-BRISTOL-MYERS SQUIBB COMPANY-BMS-2015-062089

PATIENT
  Age: 57 Year
  Sex: Male
  Weight: 92.52 kg

DRUGS (6)
  1. ELIQUIS [Suspect]
     Active Substance: APIXABAN
     Indication: CEREBROVASCULAR ACCIDENT PROPHYLAXIS
     Dosage: UNK
     Route: 065
     Dates: start: 2013
  2. ATENOLOL. [Concomitant]
     Active Substance: ATENOLOL
     Indication: VENTRICULAR TACHYCARDIA
     Dosage: UNK, QD
     Route: 048
     Dates: start: 1995
  3. MULTIVITAMINS [Concomitant]
     Active Substance: VITAMINS
     Indication: PRODUCT USED FOR UNKNOWN INDICATION
     Route: 065
  4. LOSARTAN. [Concomitant]
     Active Substance: LOSARTAN
     Indication: VENTRICULAR TACHYCARDIA
     Dosage: UNK
     Route: 065
     Dates: start: 2000
  5. ASPIRIN                            /00002701/ [Suspect]
     Active Substance: ASPIRIN
     Indication: VENTRICULAR TACHYCARDIA
     Dosage: UNK MG, UNK
     Route: 065
     Dates: start: 1995
  6. VERAPAMIL [Concomitant]
     Active Substance: VERAPAMIL HYDROCHLORIDE
     Indication: VENTRICULAR TACHYCARDIA
     Dosage: 480 MG, UNK
     Route: 065
     Dates: start: 1985

REACTIONS (7)
  - Small intestinal haemorrhage [Recovering/Resolving]
  - Loss of consciousness [Unknown]
  - Respiratory failure [Recovered/Resolved]
  - Transfusion [Unknown]
  - Iron deficiency anaemia [Recovered/Resolved]
  - Fall [Unknown]
  - Laceration [Unknown]

NARRATIVE: CASE EVENT DATE: 201306
